FAERS Safety Report 14713922 (Version 2)
Quarter: 2018Q3

REPORT INFORMATION
  Report Type: Spontaneous
  Country: DE (occurrence: DE)
  Receive Date: 20180404
  Receipt Date: 20180719
  Transmission Date: 20181010
  Serious: Yes (Death, Other)
  Sender: FDA-Public Use
  Company Number: DE-TEVA-2018-DE-877114

PATIENT
  Age: 10 Year
  Sex: Male
  Weight: 155 kg

DRUGS (3)
  1. MCP?RATIOPHARM4MG/1ML [Suspect]
     Active Substance: METOCLOPRAMIDE HYDROCHLORIDE
     Dosage: 40 GTT DAILY; DAILY DOSE: 40 GTT DROP(S) EVERY DAY
     Route: 065
     Dates: start: 1991
  2. TUTOFUSIN (AMINO ACIDS\ELECTROLYTES NOS\VITAMINS) [Suspect]
     Active Substance: AMINO ACIDS\ELECTROLYTES NOS\VITAMINS
     Route: 042
     Dates: start: 1991
  3. HL5 500 ML INFUSIONSLOEUNG (CALCIUM CHLORIDE\MAGNESIUM CHLORIDE ANHYDROUS\POTASSIUM CHLORIDE) [Suspect]
     Active Substance: CALCIUM CHLORIDE\MAGNESIUM CHLORIDE ANHYDROUS\POTASSIUM CHLORIDE
     Route: 042
     Dates: start: 1991

REACTIONS (8)
  - Overdose [Fatal]
  - Brain oedema [None]
  - Brain injury [None]
  - Ascites [Fatal]
  - Dyspnoea [Fatal]
  - Meningitis bacterial [Fatal]
  - Death [Fatal]
  - Brain death [Fatal]

NARRATIVE: CASE EVENT DATE: 1991
